FAERS Safety Report 23882128 (Version 1)
Quarter: 2024Q2

REPORT INFORMATION
  Report Type: Spontaneous
  Country: SI (occurrence: SI)
  Receive Date: 20240521
  Receipt Date: 20240521
  Transmission Date: 20240716
  Serious: Yes (Other)
  Sender: FDA-Public Use
  Company Number: SI-JNJFOC-20240539539

PATIENT
  Age: 81 Year
  Sex: Male

DRUGS (2)
  1. ERLEADA [Suspect]
     Active Substance: APALUTAMIDE
     Indication: Prostate cancer
     Dosage: UNTIL /JUN/2022
     Route: 048
     Dates: start: 202107
  2. BI ELIGARD CP [Concomitant]

REACTIONS (2)
  - Hypertensive crisis [Unknown]
  - Rash [Unknown]
